FAERS Safety Report 5696139-3 (Version None)
Quarter: 2008Q2

REPORT INFORMATION
  Report Type: 
  Country: None (occurrence: None)
  Receive Date: 20080407
  Receipt Date: 20080330
  Transmission Date: 20081010
  Serious: Yes (Death, Hospitalization, Other)
  Sender: FDA-Public Use
  Company Number: CA-ALLERGAN-0802010US

PATIENT
  Sex: Male
  Weight: 20.1 kg

DRUGS (24)
  1. BOTOX [Suspect]
     Indication: MUSCLE SPASTICITY
     Dosage: 400 UNITS, SINGLE
     Route: 030
     Dates: start: 20071114, end: 20071114
  2. BOTOX [Suspect]
     Indication: CEREBRAL PALSY
     Dosage: 170 UNITS, SINGLE
     Route: 030
     Dates: start: 20001201, end: 20001201
  3. BOTOX [Suspect]
     Dosage: 164 UNITS, SINGLE
     Route: 030
     Dates: start: 20010406, end: 20010406
  4. BOTOX [Suspect]
     Dosage: 265 UNITS, SINGLE
     Route: 030
     Dates: start: 20010705, end: 20010705
  5. BOTOX [Suspect]
     Dosage: 300 UNITS, SINGLE
     Route: 030
     Dates: start: 20011005, end: 20011005
  6. BOTOX [Suspect]
     Dosage: 299 UNITS, SINGLE
     Route: 030
     Dates: start: 20020201, end: 20020201
  7. BOTOX [Suspect]
     Dosage: 300 UNITS, SINGLE
     Route: 030
     Dates: start: 20020529, end: 20020529
  8. BOTOX [Suspect]
     Dosage: 300 UNITS, SINGLE
     Route: 030
     Dates: start: 20020906, end: 20020906
  9. BOTOX [Suspect]
     Dosage: 300 UNITS, SINGLE
     Route: 030
     Dates: start: 20030207, end: 20030207
  10. BOTOX [Suspect]
     Dosage: 300 UNITS, SINGLE
     Route: 030
     Dates: start: 20030905, end: 20030905
  11. BOTOX [Suspect]
     Dosage: 300 UNITS, SINGLE
     Route: 030
     Dates: start: 20040305, end: 20040305
  12. BOTOX [Suspect]
     Dosage: 400 UNITS, SINGLE
     Route: 030
     Dates: start: 20040806, end: 20040806
  13. BOTOX [Suspect]
     Dosage: 400 UNITS, SINGLE
     Route: 030
     Dates: start: 20041124, end: 20041124
  14. BOTOX [Suspect]
     Dosage: 400 UNITS, SINGLE
     Route: 030
     Dates: start: 20050223, end: 20050223
  15. BOTOX [Suspect]
     Dosage: 475 UNITS, SINGLE
     Route: 030
     Dates: start: 20050525, end: 20050525
  16. BOTOX [Suspect]
     Dosage: 500 UNITS, SINGLE
     Route: 030
     Dates: start: 20050914, end: 20050914
  17. BOTOX [Suspect]
     Dosage: 500 UNITS, SINGLE
     Route: 030
     Dates: start: 20051214, end: 20051214
  18. BOTOX [Suspect]
     Dosage: 500 UNITS, SINGLE
     Route: 030
     Dates: start: 20060308, end: 20060308
  19. BOTOX [Suspect]
     Dosage: 525 UNITS, SINGLE
     Route: 030
     Dates: start: 20060628, end: 20060628
  20. BOTOX [Suspect]
     Dosage: 500 UNITS, SINGLE
     Route: 030
     Dates: start: 20061025, end: 20061025
  21. OMEPRAZOLE [Concomitant]
  22. ZANAFLEX [Concomitant]
     Dosage: 1 MG, QHS
  23. DOMPERIDONE [Concomitant]
  24. LACTULOSE [Concomitant]

REACTIONS (4)
  - ASTHENIA [None]
  - PNEUMONIA ASPIRATION [None]
  - REGURGITATION [None]
  - VOMITING [None]
